FAERS Safety Report 15384580 (Version 1)
Quarter: 2018Q3

REPORT INFORMATION
  Report Type: Spontaneous
  Country: US (occurrence: US)
  Receive Date: 20180914
  Receipt Date: 20180914
  Transmission Date: 20181010
  Serious: No
  Sender: FDA-Public Use
  Company Number: US-TEVA-2018-US-953714

PATIENT
  Sex: Female

DRUGS (13)
  1. LORAZEPAM. [Concomitant]
     Active Substance: LORAZEPAM
  2. CHOLESTYRAM [Concomitant]
     Active Substance: CHOLESTYRAMINE
  3. DULOXETINE. [Concomitant]
     Active Substance: DULOXETINE
  4. NITROFUR MAC [Concomitant]
     Active Substance: NITROFURANTOIN
  5. TIZANIDINE. [Concomitant]
     Active Substance: TIZANIDINE
  6. CETIRIZINE [Concomitant]
     Active Substance: CETIRIZINE HYDROCHLORIDE
  7. LEVOTHYROXINE. [Concomitant]
     Active Substance: LEVOTHYROXINE
  8. COPAXONE [Suspect]
     Active Substance: GLATIRAMER ACETATE
     Indication: MULTIPLE SCLEROSIS
     Dosage: PFS
     Route: 058
     Dates: start: 20120107
  9. GABAPENTIN. [Concomitant]
     Active Substance: GABAPENTIN
  10. NEXIUM [Concomitant]
     Active Substance: ESOMEPRAZOLE MAGNESIUM
  11. POLYETH GLYC [Concomitant]
     Active Substance: POLYETHYLENE GLYCOLS
  12. ESTRING [Concomitant]
     Active Substance: ESTRADIOL
  13. BACLOFEN. [Concomitant]
     Active Substance: BACLOFEN

REACTIONS (1)
  - Urinary tract infection [Unknown]
